FAERS Safety Report 9368958 (Version 2)
Quarter: 2013Q3

REPORT INFORMATION
  Report Type: Spontaneous
  Country: DE (occurrence: DE)
  Receive Date: 20130626
  Receipt Date: 20130710
  Transmission Date: 20140515
  Serious: Yes (Other)
  Sender: FDA-Public Use
  Company Number: DE-SHIRE-ALL1-2013-04179

PATIENT
  Age: 72 Year
  Sex: Male
  Weight: 75 kg

DRUGS (6)
  1. XAGRID [Suspect]
     Indication: ESSENTIAL THROMBOCYTHAEMIA
     Dosage: 1.5 MG, 1X/DAY:QD (3 CAPSULES AT 0.5 MG XAGRID)
     Route: 048
     Dates: start: 20120627
  2. XAGRID [Suspect]
     Dosage: 2.5 MG, 1X/DAY:QD (5 CAPSULES AT 0.5 MG XAGRID)
     Route: 048
     Dates: start: 20130517, end: 20130619
  3. XAGRID [Suspect]
     Dosage: 3 MG, 1X/DAY:QD (6 CAPSULES AT 0.5 MG XAGRID)
     Route: 048
     Dates: start: 20130620
  4. ASPIRIN [Concomitant]
     Indication: THROMBOSIS
     Dosage: 100 MG, 1X/DAY:QD
     Route: 048
     Dates: start: 20110411, end: 20130426
  5. ASPIRIN [Concomitant]
     Indication: TRANSIENT ISCHAEMIC ATTACK
     Dosage: 100 MG, 1X/DAY:QD
     Route: 048
     Dates: start: 20130508
  6. MYLERAN [Concomitant]
     Indication: PRODUCT USED FOR UNKNOWN INDICATION
     Dosage: 2 MG, 1X/DAY:QD
     Route: 065

REACTIONS (2)
  - Transient ischaemic attack [Recovered/Resolved]
  - Mouth haemorrhage [Recovered/Resolved]
